FAERS Safety Report 10460100 (Version 1)
Quarter: 2014Q3

REPORT INFORMATION
  Report Type: Spontaneous
  Country: DK (occurrence: FR)
  Receive Date: 20140917
  Receipt Date: 20140917
  Transmission Date: 20150326
  Serious: Yes (Hospitalization)
  Sender: FDA-Public Use
  Company Number: FR-FRI-1000070643

PATIENT
  Age: 83 Year
  Sex: Female

DRUGS (10)
  1. SPAGULAX [Concomitant]
     Active Substance: PLANTAGO OVATA SEED
     Dosage: 1 DF
  2. CRESTOR [Concomitant]
     Active Substance: ROSUVASTATIN CALCIUM
     Dosage: 1 DF
  3. ALDACTAZINE [Concomitant]
     Active Substance: ALTHIAZIDE\SPIRONOLACTONE
     Dosage: 12.5/7.5 MG DAILY
  4. SULFARLEM [Concomitant]
     Active Substance: ANETHOLTRITHION
     Dosage: 3 DF
  5. CITALOPRAM [Suspect]
     Active Substance: CITALOPRAM HYDROBROMIDE
     Indication: DEPRESSION
     Dosage: 0.5 DF
     Route: 048
     Dates: start: 20140708, end: 20140721
  6. DOLIPRANE [Concomitant]
     Active Substance: ACETAMINOPHEN
     Dosage: 6 DF
  7. PLAVIX [Concomitant]
     Active Substance: CLOPIDOGREL BISULFATE
     Dosage: 1 DF
  8. TRANSIPEG [Concomitant]
     Active Substance: POLYETHYLENE GLYCOL 3350
     Dosage: 2 DF
  9. FLECAINE [Concomitant]
     Active Substance: FLECAINIDE
     Indication: ARRHYTHMIA
     Dosage: 1 DF
  10. SERESTA [Concomitant]
     Active Substance: OXAZEPAM
     Dosage: 1 DF

REACTIONS (5)
  - Memory impairment [Recovered/Resolved]
  - Confusional state [Recovered/Resolved]
  - Hypokalaemia [Recovered/Resolved]
  - Hyponatraemia [Recovered/Resolved]
  - Hallucination [Recovered/Resolved]

NARRATIVE: CASE EVENT DATE: 20140720
